FAERS Safety Report 14704895 (Version 2)
Quarter: 2018Q2

REPORT INFORMATION
  Report Type: Spontaneous
  Country: CH (occurrence: CH)
  Receive Date: 20180402
  Receipt Date: 20180405
  Transmission Date: 20180711
  Serious: Yes (Other)
  Sender: FDA-Public Use
  Company Number: CH-PFIZER INC-2018130496

PATIENT
  Age: 71 Year
  Sex: Male

DRUGS (1)
  1. DOXORUBICIN HCL [Suspect]
     Active Substance: DOXORUBICIN HYDROCHLORIDE
     Indication: HEPATOCELLULAR CARCINOMA
     Dosage: TWO ML OF 100-300 MICROMETER DEB (LOADED WITH 37.5 MG/ML OF DOXORUBICIN)
     Route: 013

REACTIONS (3)
  - Embolism arterial [Recovering/Resolving]
  - Skin ulcer [Recovering/Resolving]
  - Administration site extravasation [Recovering/Resolving]
